FAERS Safety Report 17316514 (Version 1)
Quarter: 2020Q1

REPORT INFORMATION
  Report Type: Report from Study
  Country: US (occurrence: US)
  Receive Date: 20200124
  Receipt Date: 20200124
  Transmission Date: 20200409
  Serious: Yes (Other)
  Sender: FDA-Public Use
  Company Number: US-ROCHE-2529822

PATIENT

DRUGS (1)
  1. CLONAZEPAM. [Suspect]
     Active Substance: CLONAZEPAM
     Indication: SYNCOPE
     Dosage: TITRATED AT 0.25-0.5 MG/DAY
     Route: 065

REACTIONS (2)
  - Syncope [Unknown]
  - Transient ischaemic attack [Unknown]
